FAERS Safety Report 19419307 (Version 6)
Quarter: 2024Q1

REPORT INFORMATION
  Report Type: Spontaneous
  Country: CA (occurrence: CA)
  Receive Date: 20210615
  Receipt Date: 20240314
  Transmission Date: 20240410
  Serious: Yes (Other)
  Sender: FDA-Public Use
  Company Number: CA-PFIZER INC-2018145519

PATIENT
  Age: 68 Year
  Sex: Female

DRUGS (5)
  1. XELJANZ [Suspect]
     Active Substance: TOFACITINIB CITRATE
     Indication: Rheumatoid arthritis
     Dosage: 5 MG, 2X/DAY
     Route: 048
     Dates: start: 20180313
  2. COVID-19 VACCINE [Concomitant]
     Indication: COVID-19 immunisation
     Dosage: UNK
     Dates: start: 202104
  3. LEFLUNOMIDE [Concomitant]
     Active Substance: LEFLUNOMIDE
     Indication: Rheumatoid arthritis
     Dosage: 1 DF
  4. LEFLUNOMIDE [Concomitant]
     Active Substance: LEFLUNOMIDE
     Dosage: 20 MG, 1X/DAY
  5. LEFLUNOMIDE [Concomitant]
     Active Substance: LEFLUNOMIDE
     Indication: Rheumatoid arthritis
     Dosage: 20 MG, 1X/DAY (TAKE 1 TABLET ONCE A DAY ALWAYS AT THE SAME TIME IN THE MORNING)

REACTIONS (19)
  - Arthralgia [Recovering/Resolving]
  - Spinal stenosis [Not Recovered/Not Resolved]
  - Back pain [Not Recovered/Not Resolved]
  - Therapeutic product effect incomplete [Unknown]
  - Condition aggravated [Recovering/Resolving]
  - C-reactive protein increased [Unknown]
  - Osteoarthritis [Not Recovered/Not Resolved]
  - Pain [Unknown]
  - Swelling [Unknown]
  - Musculoskeletal stiffness [Recovered/Resolved]
  - Middle insomnia [Recovered/Resolved]
  - Impaired work ability [Unknown]
  - HIV test positive [Unknown]
  - Infection [Recovered/Resolved]
  - Synovial disorder [Unknown]
  - Red blood cell sedimentation rate increased [Unknown]
  - Exostosis [Not Recovered/Not Resolved]
  - Bone erosion [Unknown]
  - Deformity [Unknown]

NARRATIVE: CASE EVENT DATE: 20180101
